FAERS Safety Report 8832134 (Version 2)
Quarter: 2015Q2

REPORT INFORMATION
  Report Type: Report from Study
  Country: US (occurrence: US)
  Receive Date: 20121009
  Receipt Date: 20150622
  Transmission Date: 20150821
  Serious: Yes (Death, Other)
  Sender: FDA-Public Use
  Company Number: US-ROCHE-1104497

PATIENT
  Sex: Male

DRUGS (14)
  1. PREDNISONE. [Concomitant]
     Active Substance: PREDNISONE
     Route: 048
  2. DECADRON [Concomitant]
     Active Substance: DEXAMETHASONE
  3. WINRHO [Concomitant]
     Active Substance: HUMAN RHO(D) IMMUNE GLOBULIN
  4. RITUXAN [Suspect]
     Active Substance: RITUXIMAB
     Indication: THROMBOCYTOPENIA
     Dosage: 100 MG
     Route: 042
     Dates: start: 20080512
  5. AVASTIN [Suspect]
     Active Substance: BEVACIZUMAB
     Indication: LUNG NEOPLASM MALIGNANT
  6. ALOXI [Concomitant]
     Active Substance: PALONOSETRON HYDROCHLORIDE
     Route: 042
  7. AVASTIN [Suspect]
     Active Substance: BEVACIZUMAB
     Indication: THROMBOCYTOPENIA
     Route: 042
     Dates: start: 20080609
  8. CARBOPLATIN. [Concomitant]
     Active Substance: CARBOPLATIN
     Route: 042
  9. RITUXAN [Suspect]
     Active Substance: RITUXIMAB
     Indication: LUNG NEOPLASM MALIGNANT
     Route: 042
     Dates: start: 20080513
  10. BENADRYL [Concomitant]
     Active Substance: DIPHENHYDRAMINE HYDROCHLORIDE
     Route: 042
  11. ARANESP [Concomitant]
     Active Substance: DARBEPOETIN ALFA
     Route: 042
  12. SOLU-MEDROL [Concomitant]
     Active Substance: METHYLPREDNISOLONE SODIUM SUCCINATE
     Route: 042
  13. TAXOL [Concomitant]
     Active Substance: PACLITAXEL
     Route: 042
  14. RITUXAN [Suspect]
     Active Substance: RITUXIMAB
     Dosage: 27/MAY/2008, 03/JUN/2008
     Route: 042
     Dates: start: 20080520

REACTIONS (11)
  - Death [Fatal]
  - Haemolytic anaemia [Recovered/Resolved]
  - Dyspnoea exertional [Unknown]
  - Pain [Unknown]
  - Off label use [Unknown]
  - Hepatic steatosis [Unknown]
  - Metastases to central nervous system [Unknown]
  - Therapeutic product ineffective [Unknown]
  - Fatigue [Unknown]
  - Dizziness [Unknown]
  - Fall [Unknown]
